FAERS Safety Report 23875079 (Version 1)
Quarter: 2024Q2

REPORT INFORMATION
  Report Type: Spontaneous
  Country: US (occurrence: None)
  Receive Date: 20240520
  Receipt Date: 20240520
  Transmission Date: 20240715
  Serious: Yes (Other)
  Sender: FDA-Public Use
  Company Number: None

PATIENT
  Age: 48 Year
  Sex: Female

DRUGS (1)
  1. BENLYSTA [Suspect]
     Active Substance: BELIMUMAB
     Indication: Systemic lupus erythematosus
     Dosage: FREQUENCY : WEEKLY;?

REACTIONS (6)
  - Therapeutic product effect decreased [None]
  - Systemic lupus erythematosus [None]
  - Condition aggravated [None]
  - Diarrhoea [None]
  - Arthralgia [None]
  - Alopecia [None]
